FAERS Safety Report 24071774 (Version 1)
Quarter: 2024Q3

REPORT INFORMATION
  Report Type: Report from Study
  Country: DE (occurrence: DE)
  Receive Date: 20240710
  Receipt Date: 20240710
  Transmission Date: 20241017
  Serious: No
  Sender: ROCHE
  Company Number: DE-ROCHE-3380573

PATIENT
  Age: 4 Year
  Sex: Female
  Weight: 21.5 kg

DRUGS (1)
  1. EVRYSDI [Suspect]
     Active Substance: RISDIPLAM
     Indication: Spinal muscular atrophy
     Dosage: ON 23/JUN/2023, 20/FEB/2024, SHE RECEIVED LAST OF RISDIPLAM.
     Route: 048
     Dates: start: 20220112

REACTIONS (9)
  - Tibia fracture [Recovered/Resolved]
  - Abdominal symptom [Unknown]
  - Viral infection [Recovered/Resolved]
  - Bronchitis viral [Recovered/Resolved]
  - Gastrointestinal disorder [Recovered/Resolved]
  - Gastrointestinal disorder [Recovered/Resolved]
  - Ill-defined disorder [Unknown]
  - Eczema [Unknown]
  - Dry skin [Unknown]

NARRATIVE: CASE EVENT DATE: 20220127
